FAERS Safety Report 6838937-6 (Version None)
Quarter: 2010Q3

REPORT INFORMATION
  Report Type: 
  Country: None (occurrence: None)
  Receive Date: 20100713
  Receipt Date: 20070904
  Transmission Date: 20110219
  Serious: Yes (Other)
  Sender: FDA-Public Use
  Company Number: US-PFIZER INC-2007040118

PATIENT
  Sex: Female

DRUGS (5)
  1. CHANTIX [Suspect]
     Indication: TOBACCO ABUSE
     Route: 048
     Dates: start: 20070501
  2. THYROID TAB [Concomitant]
  3. ANTIHYPERTENSIVES [Concomitant]
     Indication: HYPERTENSION
  4. NEXIUM [Concomitant]
  5. VALTREX [Concomitant]

REACTIONS (1)
  - SOMNOLENCE [None]
